FAERS Safety Report 8600329 (Version 4)
Quarter: 2013Q4

REPORT INFORMATION
  Report Type: Spontaneous
  Country: US (occurrence: US)
  Receive Date: 20120606
  Receipt Date: 20131127
  Transmission Date: 20140711
  Serious: Yes (Other)
  Sender: FDA-Public Use
  Company Number: US-ASTRAZENECA-2011SE41445

PATIENT
  Age: 53 Year
  Sex: Female
  Weight: 59 kg

DRUGS (18)
  1. NEXIUM [Suspect]
     Indication: GASTROOESOPHAGEAL REFLUX DISEASE
     Dosage: EVERYDAY
     Route: 048
     Dates: end: 201104
  2. NEXIUM [Suspect]
     Indication: ULCER
     Dosage: EVERYDAY
     Route: 048
     Dates: end: 201104
  3. NEXIUM [Suspect]
     Indication: GASTROOESOPHAGEAL REFLUX DISEASE
     Route: 048
     Dates: start: 2002, end: 2011
  4. NEXIUM [Suspect]
     Indication: ULCER
     Route: 048
     Dates: start: 2002, end: 2011
  5. NEXIUM [Suspect]
     Indication: GASTROOESOPHAGEAL REFLUX DISEASE
     Route: 048
     Dates: start: 20080214
  6. NEXIUM [Suspect]
     Indication: ULCER
     Route: 048
     Dates: start: 20080214
  7. ZANTAC [Concomitant]
  8. ALKA-SELTZER [Concomitant]
  9. LITHIUM [Concomitant]
     Dates: start: 20080214
  10. HYDROCODONE [Concomitant]
     Indication: PAIN
  11. GABAPENTIN [Concomitant]
     Indication: NERVE INJURY
  12. TIZANIDINE [Concomitant]
     Indication: MUSCLE SPASMS
  13. LIVOXIL [Concomitant]
     Indication: THYROID DISORDER
  14. XANAX [Concomitant]
     Dates: start: 20080214
  15. DEPAKOTE [Concomitant]
     Dates: start: 20080214
  16. PREVACID [Concomitant]
  17. KEFLEX [Concomitant]
     Route: 048
  18. PERCOCET [Concomitant]
     Dosage: 325 MG-10MG PER NEEDED
     Route: 048

REACTIONS (19)
  - Cerebrovascular accident [Unknown]
  - Osteoporosis [Unknown]
  - Ankle fracture [Unknown]
  - Lower limb fracture [Unknown]
  - Fall [Unknown]
  - Foot fracture [Unknown]
  - Osteopenia [Unknown]
  - Emotional distress [Unknown]
  - Pain [Unknown]
  - Arthritis [Unknown]
  - Chronic obstructive pulmonary disease [Unknown]
  - Liver disorder [Unknown]
  - Hepatitis C [Unknown]
  - Bronchitis [Unknown]
  - Arthropathy [Unknown]
  - Intervertebral disc degeneration [Unknown]
  - Spinal column stenosis [Unknown]
  - Depression [Unknown]
  - Head discomfort [Unknown]
